FAERS Safety Report 7576534-8 (Version None)
Quarter: 2011Q2

REPORT INFORMATION
  Report Type: 
  Country: None (occurrence: None)
  Receive Date: 20110628
  Receipt Date: 20110523
  Transmission Date: 20111010
  Serious: Yes (Hospitalization)
  Sender: FDA-Public Use
  Company Number: US-BAYER-2010-002699

PATIENT
  Age: 23 Year
  Sex: Female
  Weight: 61.224 kg

DRUGS (1)
  1. YAZ [Suspect]
     Indication: PRODUCT USED FOR UNKNOWN INDICATION
     Dosage: UNK
     Route: 048
     Dates: start: 20070101, end: 20080101

REACTIONS (3)
  - MENTAL DISORDER [None]
  - HAEMORRHAGE [None]
  - GALLBLADDER DISORDER [None]
